FAERS Safety Report 9129579 (Version 1)
Quarter: 2013Q1

REPORT INFORMATION
  Report Type: Spontaneous
  Country: DE (occurrence: DE)
  Receive Date: 20130228
  Receipt Date: 20130228
  Transmission Date: 20140127
  Serious: Yes (Other)
  Sender: FDA-Public Use
  Company Number: DE-ROCHE-1195667

PATIENT
  Sex: Female

DRUGS (1)
  1. AVASTIN [Suspect]
     Indication: OVARIAN CANCER
     Route: 042
     Dates: start: 201201

REACTIONS (7)
  - Headache [Unknown]
  - Paraesthesia [Unknown]
  - Hypertension [Unknown]
  - Disorientation [Unknown]
  - Speech disorder [Unknown]
  - CSF protein increased [Unknown]
  - Posterior reversible encephalopathy syndrome [Unknown]
